FAERS Safety Report 10180620 (Version 1)
Quarter: 2014Q2

REPORT INFORMATION
  Report Type: Spontaneous
  Country: US (occurrence: US)
  Receive Date: 20140519
  Receipt Date: 20140519
  Transmission Date: 20141212
  Serious: No
  Sender: FDA-Public Use
  Company Number: US-AMGEN INC.-USASP2014023401

PATIENT
  Age: 56 Year
  Sex: Female

DRUGS (4)
  1. PROLIA [Suspect]
     Indication: OSTEOPOROSIS POSTMENOPAUSAL
     Dosage: UNK
     Route: 065
     Dates: start: 2012
  2. CALCIUM [Concomitant]
  3. FISH OIL [Concomitant]
  4. EXCEDRIN                           /00110301/ [Concomitant]

REACTIONS (4)
  - Nasopharyngitis [Unknown]
  - Sinus disorder [Unknown]
  - Pain in jaw [Unknown]
  - Toothache [Unknown]
